FAERS Safety Report 23939723 (Version 1)
Quarter: 2024Q2

REPORT INFORMATION
  Report Type: Spontaneous
  Country: IT (occurrence: IT)
  Receive Date: 20240605
  Receipt Date: 20240605
  Transmission Date: 20240715
  Serious: Yes (Hospitalization)
  Sender: FDA-Public Use
  Company Number: None

PATIENT
  Age: 47 Year
  Sex: Male

DRUGS (1)
  1. IBUPROFEN [Suspect]
     Active Substance: IBUPROFEN
     Indication: Product used for unknown indication
     Dosage: UNK UNK, DAILY (FREQUENCY OF ADMINISTRATION: DAILY ROUTE OF ADMINISTRATION: ORAL)
     Route: 048
     Dates: start: 20230216, end: 20230217

REACTIONS (3)
  - Abdominal pain [Recovered/Resolved]
  - Vomiting [Recovered/Resolved]
  - Urticaria [Recovered/Resolved]

NARRATIVE: CASE EVENT DATE: 20230216
